FAERS Safety Report 4412656-8 (Version None)
Quarter: 2004Q2

REPORT INFORMATION
  Report Type: 
  Country: None (occurrence: None)
  Receive Date: 20040630
  Receipt Date: 20040310
  Transmission Date: 20050107
  Serious: No
  Sender: FDA-Public Use
  Company Number: 04P-163-0253372-00

PATIENT
  Age: 80 Year
  Sex: Female
  Weight: 74.3899 kg

DRUGS (2)
  1. HUMIRA [Suspect]
     Indication: RHEUMATOID ARTHRITIS
     Dosage: 40 MG, 1 IN 2 WK, SUBCUTANEOUS
     Route: 058
     Dates: start: 20031001, end: 20040201
  2. ASPIRIN [Concomitant]

REACTIONS (5)
  - HEADACHE [None]
  - INJECTION SITE BURNING [None]
  - INJECTION SITE ERYTHEMA [None]
  - INJECTION SITE SWELLING [None]
  - RASH [None]
